FAERS Safety Report 14148865 (Version 1)
Quarter: 2017Q4

REPORT INFORMATION
  Report Type: Spontaneous
  Country: FR (occurrence: FR)
  Receive Date: 20171101
  Receipt Date: 20171101
  Transmission Date: 20180321
  Serious: Yes (Congenital Anomaly, Other)
  Sender: FDA-Public Use
  Company Number: FR-PFIZER INC-2017465961

PATIENT
  Sex: Male
  Weight: 2.46 kg

DRUGS (2)
  1. VIMPAT [Suspect]
     Active Substance: LACOSAMIDE
     Indication: PARTIAL SEIZURES
     Dosage: 150 MG, 2X/DAY
     Route: 064
  2. NEURONTIN [Suspect]
     Active Substance: GABAPENTIN
     Indication: PARTIAL SEIZURES
     Dosage: 400 MG, 3X/DAY
     Route: 064

REACTIONS (10)
  - Hypertonia neonatal [Unknown]
  - Opisthotonus [Recovered/Resolved]
  - Ventricular septal defect [Not Recovered/Not Resolved]
  - Congenital skin dimples [Not Recovered/Not Resolved]
  - Umbilical hernia [Unknown]
  - Dysmorphism [Not Recovered/Not Resolved]
  - Neonatal respiratory distress syndrome [Unknown]
  - Pain [Unknown]
  - Maternal exposure during pregnancy [Not Recovered/Not Resolved]
  - Musculoskeletal stiffness [Unknown]

NARRATIVE: CASE EVENT DATE: 20170915
